FAERS Safety Report 13040740 (Version 3)
Quarter: 2017Q1

REPORT INFORMATION
  Report Type: Spontaneous
  Country: AU (occurrence: AU)
  Receive Date: 20161219
  Receipt Date: 20170301
  Transmission Date: 20170428
  Serious: Yes (Life-Threatening, Other)
  Sender: FDA-Public Use
  Company Number: AU-PFIZER INC-2016580225

PATIENT
  Age: 56 Year
  Sex: Female
  Weight: 79.3 kg

DRUGS (8)
  1. ENDONE [Concomitant]
     Active Substance: OXYCODONE HYDROCHLORIDE
     Dosage: 10 UNK, UNK
     Dates: end: 201610
  2. OXYCODONE [Concomitant]
     Active Substance: OXYCODONE
     Dosage: 10 UNK, UNK
     Dates: end: 201610
  3. LYRICA [Suspect]
     Active Substance: PREGABALIN
     Indication: NEURALGIA
     Dosage: 25 MG, WEEKLY
     Route: 048
  4. TARGIN [Concomitant]
     Active Substance: NALOXONE HYDROCHLORIDE\OXYCODONE HYDROCHLORIDE
     Dosage: 15 MG, 2X/DAY
     Route: 048
     Dates: end: 201611
  5. LYRICA [Suspect]
     Active Substance: PREGABALIN
     Dosage: 150 MG, 2X/DAY
     Route: 048
     Dates: start: 20160408
  6. GABAPENTIN. [Suspect]
     Active Substance: GABAPENTIN
     Indication: BACK PAIN
     Dosage: 500 MG, 3X/DAY
     Route: 048
  7. LYRICA [Suspect]
     Active Substance: PREGABALIN
     Indication: BACK PAIN
     Dosage: INCREASED UP TO 300 MG, DAILY (150MG TWICE DAILY)
     Route: 048
     Dates: start: 201606, end: 20170109
  8. GABAPENTIN. [Suspect]
     Active Substance: GABAPENTIN
     Indication: NEURALGIA
     Dosage: 300 MG, 3X/DAY
     Route: 048
     Dates: start: 201606, end: 20161104

REACTIONS (35)
  - Onychomadesis [Unknown]
  - Cold sweat [Not Recovered/Not Resolved]
  - Disturbance in attention [Recovered/Resolved]
  - Nausea [Not Recovered/Not Resolved]
  - Abnormal dreams [Unknown]
  - Fatigue [Unknown]
  - Suicidal ideation [Recovered/Resolved]
  - Anxiety [Recovered/Resolved]
  - Memory impairment [Recovered/Resolved]
  - Insomnia [Not Recovered/Not Resolved]
  - Arthralgia [Unknown]
  - Pruritus [Unknown]
  - Headache [Not Recovered/Not Resolved]
  - Lacrimation increased [Unknown]
  - Pain [Unknown]
  - Dry mouth [Unknown]
  - Eye pain [Unknown]
  - Muscle spasms [Unknown]
  - Confusional state [Not Recovered/Not Resolved]
  - Withdrawal syndrome [Not Recovered/Not Resolved]
  - Back pain [Unknown]
  - Libido decreased [Recovered/Resolved]
  - Musculoskeletal stiffness [Not Recovered/Not Resolved]
  - Dry eye [Unknown]
  - Ear infection [Recovered/Resolved]
  - Depressed mood [Recovered/Resolved]
  - Depersonalisation/derealisation disorder [Recovered/Resolved]
  - Apathy [Not Recovered/Not Resolved]
  - Epistaxis [Unknown]
  - Formication [Unknown]
  - Hair texture abnormal [Unknown]
  - Vision blurred [Not Recovered/Not Resolved]
  - Hyperhidrosis [Not Recovered/Not Resolved]
  - Diarrhoea [Recovered/Resolved]
  - Feeling abnormal [Unknown]

NARRATIVE: CASE EVENT DATE: 201610
